FAERS Safety Report 4870361-8 (Version None)
Quarter: 2005Q4

REPORT INFORMATION
  Report Type: 
  Country: None (occurrence: None)
  Receive Date: 20051228
  Receipt Date: 20051216
  Transmission Date: 20060501
  Serious: Yes (Hospitalization, Other)
  Sender: FDA-Public Use
  Company Number: KII-2005-0020337

PATIENT
  Age: 70 Year
  Sex: Female

DRUGS (2)
  1. MORPHINE SULFATE [Suspect]
     Indication: PAIN MANAGEMENT
     Dosage: ORAL
     Route: 048
  2. ORAL ANTIDIABETICS () [Suspect]
     Indication: DIABETES MELLITUS NON-INSULIN-DEPENDENT
     Dosage: ORAL
     Route: 048

REACTIONS (5)
  - ANOREXIA [None]
  - BLOOD GLUCOSE DECREASED [None]
  - LETHARGY [None]
  - MENTAL STATUS CHANGES [None]
  - RESPIRATORY RATE DECREASED [None]
